FAERS Safety Report 12455705 (Version 5)
Quarter: 2016Q4

REPORT INFORMATION
  Report Type: Spontaneous
  Country: PK (occurrence: PK)
  Receive Date: 20160610
  Receipt Date: 20161010
  Transmission Date: 20170207
  Serious: Yes (Other)
  Sender: FDA-Public Use
  Company Number: PK-PFIZER INC-2016273019

PATIENT
  Age: 65 Year
  Sex: Male

DRUGS (6)
  1. MONIS [Concomitant]
     Dosage: UNK
     Dates: start: 2000
  2. LOPRIN [Concomitant]
     Dosage: UNK
     Dates: start: 2000
  3. PLAVIX [Concomitant]
     Active Substance: CLOPIDOGREL BISULFATE
     Dosage: UNK
     Dates: start: 2000
  4. LIPITOR [Suspect]
     Active Substance: ATORVASTATIN CALCIUM
     Indication: HYPERCHOLESTEROLAEMIA
     Dosage: 10 MG, 1X/DAY
  5. LIPITOR [Suspect]
     Active Substance: ATORVASTATIN CALCIUM
     Dosage: 10 MG, ALTERNATE DAY
     Dates: start: 2000
  6. LIPITOR [Suspect]
     Active Substance: ATORVASTATIN CALCIUM
     Dosage: 20 MG, ALTERNATE DAY
     Dates: start: 2000

REACTIONS (1)
  - Vein disorder [Recovered/Resolved]

NARRATIVE: CASE EVENT DATE: 201604
